FAERS Safety Report 7752576 (Version 4)
Quarter: 2020Q1

REPORT INFORMATION
  Report Type: Spontaneous
  Country: ES (occurrence: ES)
  Receive Date: 20110107
  Receipt Date: 20200212
  Transmission Date: 20200409
  Serious: Yes (Other)
  Sender: FDA-Public Use
  Company Number: PHHY2010ES88066

PATIENT
  Age: 27 Year
  Sex: Male

DRUGS (1)
  1. ZOLPIDEM [Suspect]
     Active Substance: ZOLPIDEM TARTRATE
     Indication: INSOMNIA
     Dosage: 10 MG, QD (BEFORE BED TIME)
     Route: 048

REACTIONS (9)
  - Amnesia [Unknown]
  - Decreased appetite [Unknown]
  - Parasomnia [Recovered/Resolved]
  - Weight increased [Unknown]
  - Skin laceration [Unknown]
  - Abnormal sleep-related event [Recovered/Resolved]
  - Condition aggravated [Unknown]
  - Sleep talking [Recovering/Resolving]
  - Sleep-related eating disorder [Recovered/Resolved]
